FAERS Safety Report 6433514-3 (Version None)
Quarter: 2009Q4

REPORT INFORMATION
  Report Type: 
  Country: None (occurrence: None)
  Receive Date: 20091109
  Receipt Date: 20091106
  Transmission Date: 20100525
  Serious: Yes (Hospitalization, Other)
  Sender: FDA-Public Use
  Company Number: US-ABBOTT-09P-163-0605809-00

PATIENT
  Sex: Female
  Weight: 52.21 kg

DRUGS (7)
  1. SIMCOR [Suspect]
     Indication: LOW DENSITY LIPOPROTEIN INCREASED
     Dosage: 500MG/20MG DAILY AT NIGHT
     Dates: start: 20080101, end: 20090301
  2. SIMCOR [Suspect]
     Dosage: 1000MG/20MG DAILY AT NIGHT
     Dates: start: 20090301
  3. SIMCOR [Suspect]
     Dosage: 500MG/20MG DAILY
     Dates: end: 20091021
  4. SIMCOR [Suspect]
     Dosage: 750MG/20MG
     Dates: start: 20091021
  5. ASPIRIN [Concomitant]
     Indication: DRUG USE FOR UNKNOWN INDICATION
  6. ACTONEL [Concomitant]
     Indication: DRUG USE FOR UNKNOWN INDICATION
  7. M.V.I. [Concomitant]
     Indication: DRUG USE FOR UNKNOWN INDICATION

REACTIONS (12)
  - ANGINA PECTORIS [None]
  - ARTERIAL OCCLUSIVE DISEASE [None]
  - BALANCE DISORDER [None]
  - DIARRHOEA [None]
  - DIZZINESS [None]
  - FLUSHING [None]
  - GASTROINTESTINAL PAIN [None]
  - ILL-DEFINED DISORDER [None]
  - INFLUENZA [None]
  - NAUSEA [None]
  - PARAESTHESIA [None]
  - RETCHING [None]
